FAERS Safety Report 6552904-1 (Version None)
Quarter: 2010Q1

REPORT INFORMATION
  Report Type: 
  Country: None (occurrence: None)
  Receive Date: 20100122
  Receipt Date: 20100120
  Transmission Date: 20100710
  Serious: Yes (Death, Life-Threatening, Hospitalization, Disabling, Other)
  Sender: FDA-Public Use
  Company Number: 2008SP000504

PATIENT
  Age: 61 Year
  Sex: Male
  Weight: 74.5 kg

DRUGS (6)
  1. TEMODAL [Suspect]
     Indication: GLIOBLASTOMA MULTIFORME
     Dosage: 75 MG/M2, QD; PO
     Route: 048
     Dates: start: 20071001, end: 20071109
  2. TOPIRAMATE [Suspect]
     Indication: CONVULSION
     Dosage: 25 MG; PO, 50 MG; PO
     Route: 048
     Dates: start: 20071001
  3. LANSOPRAZOLE (CON.) [Concomitant]
  4. DEXAMETHASONE (CON.) [Concomitant]
  5. ALLOPRINOL (CON.) [Concomitant]
  6. FIILGRASTIM (CON.) [Concomitant]

REACTIONS (6)
  - BONE MARROW FAILURE [None]
  - CONVULSION [None]
  - FEBRILE NEUTROPENIA [None]
  - HAEMORRHAGE [None]
  - PANCYTOPENIA [None]
  - PETECHIAE [None]
